FAERS Safety Report 24171971 (Version 1)
Quarter: 2024Q3

REPORT INFORMATION
  Report Type: Spontaneous
  Country: EG (occurrence: EG)
  Receive Date: 20240805
  Receipt Date: 20240805
  Transmission Date: 20241016
  Serious: Yes (Life-Threatening, Other)
  Sender: NOVO NORDISK
  Company Number: EG-NOVOPROD-1260871

PATIENT
  Age: 855 Month
  Sex: Male
  Weight: 95 kg

DRUGS (1)
  1. INSULIN HUMAN [Suspect]
     Active Substance: INSULIN HUMAN
     Indication: Type 1 diabetes mellitus
     Dosage: 90 IU, QD (50 U, 20 U, 20 U)
     Route: 058

REACTIONS (1)
  - Diabetic coma [Recovered/Resolved]
